FAERS Safety Report 8735859 (Version 2)
Quarter: 2012Q4

REPORT INFORMATION
  Report Type: 
  Country: FR (occurrence: FR)
  Receive Date: 20120822
  Receipt Date: 20120830
  Transmission Date: 20130627
  Serious: Yes (Other)
  Sender: FDA-Public Use
  Company Number: FR-EISAI INC-E3810-05803-SPO-FR

PATIENT
  Age: 29 Year
  Sex: Female
  Weight: 50 kg

DRUGS (2)
  1. PARIET (RABEPRAZOLE) [Suspect]
     Indication: GASTROESOPHAGEAL REFLUX
     Route: 048
     Dates: start: 20120723, end: 20120723
  2. NUVARING [Concomitant]
     Dosage: UNKNOWN
     Route: 065
     Dates: start: 2008

REACTIONS (2)
  - Pruritus [Recovered/Resolved]
  - Rash [Recovered/Resolved]
